FAERS Safety Report 22223431 (Version 2)
Quarter: 2023Q4

REPORT INFORMATION
  Report Type: Spontaneous
  Country: CN (occurrence: CN)
  Receive Date: 20230418
  Receipt Date: 20231006
  Transmission Date: 20240110
  Serious: Yes (Life-Threatening, Other)
  Sender: FDA-Public Use
  Company Number: CN-BAYER-2023A051342

PATIENT
  Age: 31 Year
  Sex: Male
  Weight: 80 kg

DRUGS (2)
  1. ULTRAVIST [Suspect]
     Active Substance: IOPROMIDE
     Indication: Angiogram
     Dosage: 76.89 G, ONCE
     Route: 042
     Dates: start: 20230410, end: 20230410
  2. ULTRAVIST [Suspect]
     Active Substance: IOPROMIDE
     Indication: Hepatic cirrhosis

REACTIONS (5)
  - Anaphylactic shock [Recovered/Resolved]
  - Rash pruritic [Recovered/Resolved]
  - Flushing [Recovered/Resolved]
  - Feeling cold [Recovered/Resolved]
  - Cyanosis [Recovered/Resolved]

NARRATIVE: CASE EVENT DATE: 20230410
